FAERS Safety Report 12928426 (Version 2)
Quarter: 2016Q4

REPORT INFORMATION
  Report Type: Spontaneous
  Country: KR (occurrence: KR)
  Receive Date: 20161110
  Receipt Date: 20161125
  Transmission Date: 20170207
  Serious: Yes (Hospitalization, Other)
  Sender: FDA-Public Use
  Company Number: KR-009507513-1611KOR001231

PATIENT
  Age: 71 Year
  Sex: Female

DRUGS (1)
  1. INTRON A [Suspect]
     Active Substance: INTERFERON ALFA-2B
     Indication: MALIGNANT MELANOMA STAGE II
     Dosage: 10X10^6 U/M2, THREE TIMES A WEEK, FOR A YEAR

REACTIONS (2)
  - Pulmonary sarcoidosis [Recovering/Resolving]
  - Cutaneous sarcoidosis [Recovering/Resolving]
